FAERS Safety Report 19213896 (Version 1)
Quarter: 2021Q2

REPORT INFORMATION
  Report Type: Spontaneous
  Country: US (occurrence: US)
  Receive Date: 20210504
  Receipt Date: 20210504
  Transmission Date: 20210717
  Serious: No
  Sender: FDA-Public Use
  Company Number: US-ROCHE-2618952

PATIENT
  Sex: Male

DRUGS (2)
  1. AVASTIN [Suspect]
     Active Substance: BEVACIZUMAB
     Indication: PRODUCT USED FOR UNKNOWN INDICATION
     Route: 065
     Dates: start: 20150223, end: 20180709
  2. OZURDEX [Concomitant]
     Active Substance: DEXAMETHASONE
     Dates: start: 20181101

REACTIONS (1)
  - Eye oedema [Not Recovered/Not Resolved]
